FAERS Safety Report 6982064-4 (Version None)
Quarter: 2010Q3

REPORT INFORMATION
  Report Type: 
  Country: None (occurrence: None)
  Receive Date: 20100914
  Receipt Date: 20091202
  Transmission Date: 20110219
  Serious: No
  Sender: FDA-Public Use
  Company Number: US-PFIZER INC-2009281670

PATIENT
  Sex: Female
  Weight: 72.6 kg

DRUGS (2)
  1. LYRICA [Suspect]
     Indication: FIBROMYALGIA
     Dosage: 75 MG, 1X/DAY
     Route: 048
  2. DESVENLAFAXINE [Concomitant]
     Dosage: UNK

REACTIONS (4)
  - ABDOMINAL DISCOMFORT [None]
  - DEPRESSION [None]
  - MALAISE [None]
  - NAUSEA [None]
